FAERS Safety Report 18362348 (Version 1)
Quarter: 2020Q4

REPORT INFORMATION
  Report Type: Spontaneous
  Country: ES (occurrence: ES)
  Receive Date: 20201008
  Receipt Date: 20201008
  Transmission Date: 20210114
  Serious: Yes (Other)
  Sender: FDA-Public Use
  Company Number: ES-AMGEN-ESPSP2020159008

PATIENT
  Age: 34 Year
  Sex: Female

DRUGS (3)
  1. OESTRADIOL VALERATE [Concomitant]
     Active Substance: ESTRADIOL VALERATE
     Dosage: UNK
     Dates: start: 2015
  2. PROGESTERONE. [Concomitant]
     Active Substance: PROGESTERONE
     Dosage: 800 MILLIGRAM, QD
     Route: 067
     Dates: start: 2015
  3. NEUPOGEN [Suspect]
     Active Substance: FILGRASTIM
     Indication: ABORTION SPONTANEOUS
     Dosage: 13 MUI, EVERY 3 DAYS
     Route: 058
     Dates: start: 20150327, end: 20150515

REACTIONS (3)
  - Maternal exposure during pregnancy [Recovered/Resolved]
  - Premature delivery [Recovered/Resolved]
  - Off label use [Unknown]

NARRATIVE: CASE EVENT DATE: 2015
